FAERS Safety Report 24964629 (Version 1)
Quarter: 2025Q1

REPORT INFORMATION
  Report Type: Spontaneous
  Country: US (occurrence: US)
  Receive Date: 20250213
  Receipt Date: 20250213
  Transmission Date: 20250409
  Serious: No
  Sender: ABBVIE
  Company Number: US-ABBVIE-6128665

PATIENT
  Sex: Female

DRUGS (3)
  1. UPADACITINIB [Suspect]
     Active Substance: UPADACITINIB
     Indication: Juvenile idiopathic arthritis
     Route: 048
  2. UPADACITINIB [Suspect]
     Active Substance: UPADACITINIB
     Indication: Crohn^s disease
  3. UPADACITINIB [Suspect]
     Active Substance: UPADACITINIB
     Indication: Crohn^s disease
     Route: 048

REACTIONS (4)
  - Product use complaint [Unknown]
  - Off label use [Unknown]
  - Musculoskeletal disorder [Unknown]
  - Choking [Unknown]
